FAERS Safety Report 19958397 (Version 1)
Quarter: 2021Q4

REPORT INFORMATION
  Report Type: Spontaneous
  Country: ID (occurrence: ID)
  Receive Date: 20211015
  Receipt Date: 20211015
  Transmission Date: 20220304
  Serious: Yes (Death)
  Sender: FDA-Public Use
  Company Number: ID-GLAXOSMITHKLINE-ID2021GSK208433

PATIENT
  Age: 65 Year
  Sex: Female

DRUGS (4)
  1. ACYCLOVIR [Suspect]
     Active Substance: ACYCLOVIR
     Indication: Varicella zoster pneumonia
     Dosage: 800 MG, TID
     Route: 042
  2. HUMAN VARICELLA-ZOSTER IMMUNE GLOBULIN [Suspect]
     Active Substance: HUMAN VARICELLA-ZOSTER IMMUNE GLOBULIN
     Indication: Varicella zoster pneumonia
     Dosage: UNK (ADMINISTERED ON THE 2ND DAY OF CARE)
  3. LEVOFLOXACIN [Concomitant]
     Active Substance: LEVOFLOXACIN
     Indication: Varicella zoster pneumonia
     Dosage: 750 MG, 1D
  4. METHYLPREDNISOLONE [Concomitant]
     Active Substance: METHYLPREDNISOLONE
     Indication: Varicella zoster pneumonia
     Dosage: 62.5 MG, TID

REACTIONS (2)
  - Drug ineffective [Fatal]
  - Treatment delayed [Unknown]
